FAERS Safety Report 14860370 (Version 2)
Quarter: 2018Q2

REPORT INFORMATION
  Report Type: Spontaneous
  Country: GB (occurrence: GB)
  Receive Date: 20180508
  Receipt Date: 20180528
  Transmission Date: 20180711
  Serious: Yes (Other)
  Sender: FDA-Public Use
  Company Number: GB-009507513-1805GBR002512

PATIENT
  Age: 27 Year
  Sex: Female
  Weight: 60 kg

DRUGS (4)
  1. APREPITANT. [Suspect]
     Active Substance: APREPITANT
     Indication: BONE MARROW TRANSPLANT
     Dosage: 125 MG, UNKNOWN
     Route: 048
  2. CYCLOPHOSPHAMIDE. [Suspect]
     Active Substance: CYCLOPHOSPHAMIDE
     Dosage: 60 MG/KG, UNK
     Route: 042
     Dates: start: 20180408, end: 20180408
  3. APREPITANT. [Suspect]
     Active Substance: APREPITANT
     Dosage: 80 MG, UNKNOWN
     Route: 048
     Dates: start: 20180407, end: 20180407
  4. CYCLOPHOSPHAMIDE. [Suspect]
     Active Substance: CYCLOPHOSPHAMIDE
     Indication: BONE MARROW TRANSPLANT
     Dosage: 60 MG/KG, UNKNOWN
     Route: 042
     Dates: start: 20180407, end: 20180407

REACTIONS (3)
  - Inappropriate antidiuretic hormone secretion [Unknown]
  - Hyponatraemia [Recovered/Resolved]
  - Generalised tonic-clonic seizure [Unknown]
